FAERS Safety Report 4492449-6 (Version None)
Quarter: 2004Q4

REPORT INFORMATION
  Report Type: 
  Country: None (occurrence: None)
  Receive Date: 20041029
  Receipt Date: 20041005
  Transmission Date: 20050328
  Serious: Yes (Hospitalization)
  Sender: FDA-Public Use
  Company Number: MEDI-0001453

PATIENT
  Age: 16 Month
  Sex: Female
  Weight: 8.72 kg

DRUGS (10)
  1. SYNAGIS [Suspect]
     Indication: ANTIVIRAL PROPHYLAXIS
     Dosage: 177 MG, 1 IN 30 D, INTRA-MUSCULAR
     Route: 030
     Dates: start: 20031128, end: 20040126
  2. WARFARIN SODIUM [Concomitant]
  3. AMOXICILLIN [Concomitant]
  4. MUCODYNE (CARBOCISTEINE) [Concomitant]
  5. ASVERIN (TIPEPIDINE HIBENZATE) [Concomitant]
  6. PERIACTIN [Concomitant]
  7. LASIX [Concomitant]
  8. ASPIRIN (1-CHLORO-2, 4-DINITROBENZENE) [Concomitant]
  9. NOVAROK (IMIDAPRIL HYDROCHLORIDE) [Concomitant]
  10. ALDACTONE [Concomitant]

REACTIONS (4)
  - CARDIAC FAILURE [None]
  - FACE OEDEMA [None]
  - PULMONARY VASCULAR DISORDER [None]
  - URINE OUTPUT DECREASED [None]
